FAERS Safety Report 5289133-8 (Version None)
Quarter: 2007Q1

REPORT INFORMATION
  Report Type: 
  Country: None (occurrence: None)
  Receive Date: 20070124
  Receipt Date: 20060802
  Transmission Date: 20070707
  Serious: Yes (Hospitalization)
  Sender: FDA-Public Use
  Company Number: US200608000752

PATIENT
  Age: 94 Year
  Sex: Female

DRUGS (9)
  1. FORTEO [Suspect]
     Indication: OSTEOPOROSIS
  2. FISH OIL (FISH OIL) [Concomitant]
  3. MIRTAZAPINE [Concomitant]
  4. PROTONIX [Concomitant]
  5. DOCUSATE (DOCUSATE) [Concomitant]
  6. MULTIVITAMINS (ASCORBIC ACID, ERGOCALCIFEROL, FOLIC ACID, NICOTINAMIDE [Concomitant]
  7. ASPIRIN [Concomitant]
  8. VICODIN [Concomitant]
  9. FORTEO PEN (250MCG/ML) (FORTE PEN 250MCG/ML (3ML)) PEN,DISPOSABLE [Concomitant]

REACTIONS (1)
  - PRESYNCOPE [None]
